FAERS Safety Report 5373594-X (Version None)
Quarter: 2007Q2

REPORT INFORMATION
  Report Type: 
  Country: None (occurrence: None)
  Receive Date: 20070628
  Receipt Date: 20070625
  Transmission Date: 20071010
  Serious: Yes (Death, Hospitalization)
  Sender: FDA-Public Use
  Company Number: CN-BRISTOL-MYERS SQUIBB COMPANY-13825377

PATIENT
  Age: 79 Year
  Sex: Male

DRUGS (7)
  1. AMIKIN [Suspect]
  2. MYCOSTATIN [Suspect]
     Route: 048
  3. CEFUROXIME [Suspect]
  4. RIFATER [Suspect]
  5. ETHAMBUTOL HYDROCHLORIDE [Suspect]
  6. CEFOPERAZONE SODIUM [Suspect]
  7. SULBACTAM [Suspect]

REACTIONS (2)
  - ARTHRITIS FUNGAL [None]
  - HAEMORRHAGE [None]
